FAERS Safety Report 9387032 (Version 1)
Quarter: 2013Q3

REPORT INFORMATION
  Report Type: Spontaneous
  Country: US (occurrence: US)
  Receive Date: 20130708
  Receipt Date: 20130708
  Transmission Date: 20140515
  Serious: No
  Sender: FDA-Public Use
  Company Number: US-BRISTOL-MYERS SQUIBB COMPANY-16673832

PATIENT
  Sex: Female

DRUGS (1)
  1. ABILIFY DISCMELT TABS [Suspect]
     Dosage: ABILIFY DISCMELT TABLETS

REACTIONS (1)
  - No adverse event [Unknown]
